FAERS Safety Report 9711344 (Version 1)
Quarter: 2013Q4

REPORT INFORMATION
  Report Type: Spontaneous
  Country: US (occurrence: US)
  Receive Date: 20131126
  Receipt Date: 20131126
  Transmission Date: 20140711
  Serious: No
  Sender: FDA-Public Use
  Company Number: US-BRISTOL-MYERS SQUIBB COMPANY-19498526

PATIENT
  Sex: Female

DRUGS (2)
  1. BYETTA [Suspect]
  2. VICTOZA [Concomitant]

REACTIONS (8)
  - Pollakiuria [Unknown]
  - Flatulence [Unknown]
  - Diarrhoea [Unknown]
  - Dizziness [Unknown]
  - Headache [Unknown]
  - Decreased appetite [Unknown]
  - Vomiting [Unknown]
  - Depression [Unknown]
